FAERS Safety Report 4907011-8 (Version None)
Quarter: 2006Q1

REPORT INFORMATION
  Report Type: 
  Country: None (occurrence: None)
  Receive Date: 20060207
  Receipt Date: 20060125
  Transmission Date: 20060701
  Serious: Yes (Hospitalization)
  Sender: FDA-Public Use
  Company Number: 2006PV007883

PATIENT
  Age: 50 Year
  Sex: Female
  Weight: 83.4619 kg

DRUGS (17)
  1. BYETTA [Suspect]
     Indication: DIABETES MELLITUS NON-INSULIN-DEPENDENT
     Dosage: 10 MCG; BID; SC;  5 MCG; BID; SC
     Route: 058
     Dates: start: 20051014, end: 20051102
  2. BYETTA [Suspect]
     Indication: DIABETES MELLITUS NON-INSULIN-DEPENDENT
     Dosage: 10 MCG; BID; SC;  5 MCG; BID; SC
     Route: 058
     Dates: start: 20051103
  3. METFORMIN HCL [Concomitant]
  4. GLIPIZIDE [Concomitant]
  5. ATENOLOL [Concomitant]
  6. ATROVENT [Concomitant]
  7. PLAVIX [Concomitant]
  8. ASPIRIN [Concomitant]
  9. DETROL [Concomitant]
  10. DIOVAN [Concomitant]
  11. ZYRTEC [Concomitant]
  12. ADVAIR DISKUS 100/50 [Concomitant]
  13. SINGULAIR [Concomitant]
  14. TRICOR [Concomitant]
  15. AMBIEN [Concomitant]
  16. ATENOLOL [Concomitant]
  17. MULTIVITAMIN [Concomitant]

REACTIONS (4)
  - CHEST PAIN [None]
  - ELECTROLYTE IMBALANCE [None]
  - VENTRICULAR EXTRASYSTOLES [None]
  - WEIGHT DECREASED [None]
